FAERS Safety Report 9123635 (Version 4)
Quarter: 2013Q3

REPORT INFORMATION
  Report Type: Report from Study
  Country: DE (occurrence: DE)
  Receive Date: 20130227
  Receipt Date: 20130911
  Transmission Date: 20140515
  Serious: Yes (Hospitalization)
  Sender: FDA-Public Use
  Company Number: DE-ROCHE-1193073

PATIENT
  Age: 76 Year
  Sex: Female
  Weight: 61 kg

DRUGS (13)
  1. TRASTUZUMAB [Suspect]
     Indication: HER-2 POSITIVE BREAST CANCER
     Dosage: LOADING DOSE
     Route: 042
     Dates: start: 20120620
  2. TRASTUZUMAB [Suspect]
     Dosage: MAINTENANCE DOSE, DATE DATE OF LAST DOSE PRIOR TO SAE: 30/JAN/2013
     Route: 042
     Dates: end: 20130220
  3. L-THYROX [Concomitant]
     Route: 065
  4. TORASEMIDE [Concomitant]
     Route: 065
     Dates: end: 20130522
  5. METOPROLOL SUCCINATE [Concomitant]
     Route: 065
  6. ASS [Concomitant]
     Route: 065
     Dates: end: 20130212
  7. DIGIMERCK [Concomitant]
     Route: 065
  8. MANNITOL [Concomitant]
     Route: 065
     Dates: start: 20130212
  9. ROCEPHIN [Concomitant]
     Route: 065
     Dates: start: 20130220, end: 20130306
  10. NOVALGIN [Concomitant]
     Route: 065
     Dates: start: 201302
  11. TARGIN [Concomitant]
     Route: 065
     Dates: start: 201302
  12. REMERGIL [Concomitant]
     Route: 065
     Dates: start: 201302
  13. PERTUZUMAB [Suspect]
     Indication: BREAST CANCER
     Route: 042
     Dates: start: 20120620

REACTIONS (2)
  - Cerebrovascular accident [Not Recovered/Not Resolved]
  - Cerebral haemorrhage [Not Recovered/Not Resolved]
